FAERS Safety Report 16466760 (Version 1)
Quarter: 2019Q2

REPORT INFORMATION
  Report Type: Report from Study
  Country: US (occurrence: US)
  Receive Date: 20190623
  Receipt Date: 20190623
  Transmission Date: 20190711
  Serious: Yes (Other)
  Sender: FDA-Public Use
  Company Number: US-BEH-2019103326

PATIENT
  Age: 41 Year
  Sex: Female
  Weight: 44.9 kg

DRUGS (1)
  1. HIZENTRA [Suspect]
     Active Substance: HUMAN IMMUNOGLOBULIN G
     Indication: IMMUNODEFICIENCY COMMON VARIABLE
     Dosage: 7 GRAM, QW
     Route: 058
     Dates: start: 201902

REACTIONS (6)
  - Infusion site pain [Recovered/Resolved]
  - Drug ineffective [Recovered/Resolved]
  - No adverse event [Unknown]
  - Product quality issue [Unknown]
  - Infusion site urticaria [Recovered/Resolved]
  - Ill-defined disorder [Recovered/Resolved]
